FAERS Safety Report 18442886 (Version 3)
Quarter: 2022Q1

REPORT INFORMATION
  Report Type: Spontaneous
  Country: NL (occurrence: NL)
  Receive Date: 20201030
  Receipt Date: 20220331
  Transmission Date: 20220423
  Serious: Yes (Other)
  Sender: FDA-Public Use
  Company Number: NL-INDIVIOR EUROPE LIMITED-INDV-123462-2020

PATIENT
  Sex: Male

DRUGS (27)
  1. OXYCODONE [Interacting]
     Active Substance: OXYCODONE
     Indication: Hyperhidrosis
     Dosage: 100 MILLIGRAM, ONCE A DAY
     Route: 065
  2. OXYCODONE [Interacting]
     Active Substance: OXYCODONE
     Indication: Back pain
     Dosage: 200 MILLIGRAM, ONCE A DAY
     Route: 065
  3. OXYCODONE [Interacting]
     Active Substance: OXYCODONE
     Dosage: 150 MILLIGRAM
     Route: 065
  4. OXYCODONE [Interacting]
     Active Substance: OXYCODONE
     Dosage: 40 MILLIGRAM
     Route: 065
  5. OXYCODONE [Interacting]
     Active Substance: OXYCODONE
     Dosage: 300 MILLIGRAM, ONCE A DAY
     Route: 065
  6. MODAFINIL [Interacting]
     Active Substance: MODAFINIL
     Indication: Attention deficit hyperactivity disorder
     Dosage: 100 MILLIGRAM, ONCE A DAY
     Route: 048
     Dates: start: 20191106
  7. MODAFINIL [Interacting]
     Active Substance: MODAFINIL
     Indication: Product used for unknown indication
     Dosage: 400 MILLIGRAM, ONCE A DAY
     Route: 048
     Dates: start: 20200131
  8. MODAFINIL [Interacting]
     Active Substance: MODAFINIL
     Dosage: 50 MILLIGRAM
     Route: 065
     Dates: start: 20220309
  9. SUBOXONE [Interacting]
     Active Substance: BUPRENORPHINE HYDROCHLORIDE\NALOXONE HYDROCHLORIDE
     Indication: Pain management
     Dosage: UNK
     Route: 065
     Dates: start: 2016
  10. SUBOXONE [Interacting]
     Active Substance: BUPRENORPHINE HYDROCHLORIDE\NALOXONE HYDROCHLORIDE
     Indication: Drug dependence
     Dosage: 8 MILLIGRAM, ONCE A DAY
     Route: 060
     Dates: start: 2019, end: 2019
  11. SUBOXONE [Interacting]
     Active Substance: BUPRENORPHINE HYDROCHLORIDE\NALOXONE HYDROCHLORIDE
     Dosage: 8 MILLIGRAM, HIGH DOSAGE OF 4-5 TIMES
     Route: 060
     Dates: start: 20191230, end: 202001
  12. SUBOXONE [Interacting]
     Active Substance: BUPRENORPHINE HYDROCHLORIDE\NALOXONE HYDROCHLORIDE
     Indication: Drug dependence
     Dosage: 2 MILLIGRAM, ONCE A DAY
     Route: 060
     Dates: start: 20191122, end: 201911
  13. SUBOXONE [Interacting]
     Active Substance: BUPRENORPHINE HYDROCHLORIDE\NALOXONE HYDROCHLORIDE
     Indication: Pain management
     Dosage: 2 MILLIGRAM, 3 TIMES A DAY
     Route: 060
     Dates: start: 20191125, end: 2019
  14. SUBOXONE [Interacting]
     Active Substance: BUPRENORPHINE HYDROCHLORIDE\NALOXONE HYDROCHLORIDE
     Dosage: UNK (12 MILIGRAM EVERY 8 HOURS )
     Route: 065
     Dates: start: 20211227
  15. SUBOXONE [Interacting]
     Active Substance: BUPRENORPHINE HYDROCHLORIDE\NALOXONE HYDROCHLORIDE
     Dosage: TAKING LESS TO 2MG
     Route: 065
  16. BUDESONIDE [Concomitant]
     Active Substance: BUDESONIDE
     Indication: Product used for unknown indication
     Dosage: 50 MICROGRAM, AS NEEDED
     Route: 045
     Dates: start: 20191104
  17. CETIRIZINE [Concomitant]
     Active Substance: CETIRIZINE HYDROCHLORIDE
     Indication: Product used for unknown indication
     Dosage: 10 MILLIGRAM, ONCE A DAY
     Route: 048
     Dates: start: 20200130
  18. CLONIDINE [Concomitant]
     Active Substance: CLONIDINE
     Indication: Hyperhidrosis
     Dosage: 50 MICROGRAM, ONCE A DAY,C-CLONIDINE-CNS-NON BENZO CNS DEPRESSANT
     Route: 048
     Dates: start: 20200124
  19. CLONIDINE [Concomitant]
     Active Substance: CLONIDINE
     Dosage: 50 MICROGRAM, FOUR TIMES/DAY
     Route: 048
  20. CLONIDINE [Concomitant]
     Active Substance: CLONIDINE
     Dosage: 0.1 MILLIGRAM, ONCE A DAY
     Route: 065
     Dates: start: 2020
  21. OMEPRAZOLE [Concomitant]
     Active Substance: OMEPRAZOLE
     Indication: Product used for unknown indication
     Dosage: 40 MILLIGRAM, TWO TIMES A DAY
     Route: 048
     Dates: start: 20191112
  22. OMEPRAZOLE [Concomitant]
     Active Substance: OMEPRAZOLE
     Dosage: 40 MILLIGRAM, TWO TIMES A DAY
     Route: 048
     Dates: start: 20200129
  23. ACETAMINOPHEN [Concomitant]
     Active Substance: ACETAMINOPHEN
     Indication: Product used for unknown indication
     Dosage: 1000 MILLIGRAM, ONCE A DAY
     Route: 048
     Dates: start: 20200124
  24. ACETAMINOPHEN [Concomitant]
     Active Substance: ACETAMINOPHEN
     Indication: Product used for unknown indication
     Dosage: 1000 MILLIGRAM, ONCE A DAY
     Route: 048
     Dates: start: 20191107
  25. DIAZEPAM [Concomitant]
     Active Substance: DIAZEPAM
     Indication: Musculoskeletal discomfort
     Dosage: 1 WEEK A MONTH 100MG IN DIVIDED OVER 2 DAYS
     Route: 065
  26. DULOXETINE [Concomitant]
     Active Substance: DULOXETINE
     Indication: Product used for unknown indication
     Dosage: 60 MILLIGRAM, ONCE A DAY
     Route: 065
  27. PIPAMPERONE HYDROCHLORIDE [Concomitant]
     Active Substance: PIPAMPERONE HYDROCHLORIDE
     Indication: Product used for unknown indication
     Dosage: 20 MILLIGRAM, FOUR TIMES/DAY
     Route: 065

REACTIONS (20)
  - Fatigue [Unknown]
  - Aggression [Unknown]
  - Drug interaction [Recovered/Resolved]
  - Therapeutic product effect incomplete [Unknown]
  - Inappropriate schedule of product administration [Recovered/Resolved]
  - Overdose [Recovered/Resolved]
  - Depression [Not Recovered/Not Resolved]
  - Suicidal ideation [Recovered/Resolved]
  - Attention deficit hyperactivity disorder [Unknown]
  - Condition aggravated [Unknown]
  - Dysgeusia [Unknown]
  - Pain in extremity [Unknown]
  - Intentional underdose [Unknown]
  - Back pain [Unknown]
  - Intentional product use issue [Recovered/Resolved]
  - Drug effect less than expected [Unknown]
  - Nausea [Unknown]
  - Inappropriate schedule of product administration [Recovered/Resolved]
  - Headache [Unknown]
  - Hyperhidrosis [Unknown]

NARRATIVE: CASE EVENT DATE: 20160101
